FAERS Safety Report 11288987 (Version 2)
Quarter: 2015Q4

REPORT INFORMATION
  Report Type: Report from Study
  Country: FR (occurrence: FR)
  Receive Date: 20150721
  Receipt Date: 20151020
  Transmission Date: 20160304
  Serious: Yes (Hospitalization, Other)
  Sender: FDA-Public Use
  Company Number: FR-ASTRAZENECA-2015SE65195

PATIENT
  Age: 54 Year
  Sex: Male

DRUGS (3)
  1. STUDY PROCEDURE [Suspect]
     Active Substance: INVESTIGATIONAL PRODUCT
     Indication: ACUTE CORONARY SYNDROME
     Route: 065
  2. ASPIRIN. [Suspect]
     Active Substance: ASPIRIN
     Indication: ACUTE CORONARY SYNDROME
     Dosage: 75 MG DAILY, (NON AZ PRODUCT)
     Route: 048
     Dates: start: 20150406
  3. TICAGRELOR [Suspect]
     Active Substance: TICAGRELOR
     Indication: ACUTE CORONARY SYNDROME
     Route: 048
     Dates: start: 20150406, end: 201505

REACTIONS (2)
  - Cardiac ventricular thrombosis [Recovered/Resolved]
  - Dyspnoea [Recovered/Resolved]

NARRATIVE: CASE EVENT DATE: 20150513
